FAERS Safety Report 5987897-9 (Version None)
Quarter: 2008Q4

REPORT INFORMATION
  Report Type: 
  Country: None (occurrence: None)
  Receive Date: 20081210
  Receipt Date: 20080902
  Transmission Date: 20090506
  Serious: No
  Sender: FDA-Public Use
  Company Number: US-AMGEN-KDL305149

PATIENT
  Sex: Female

DRUGS (1)
  1. ENBREL [Suspect]
     Indication: PSORIASIS
     Route: 058
     Dates: start: 20080827

REACTIONS (6)
  - HEADACHE [None]
  - INFLUENZA [None]
  - OROPHARYNGEAL PAIN [None]
  - PAIN [None]
  - PARANASAL SINUS HYPERSECRETION [None]
  - PYREXIA [None]
